FAERS Safety Report 7358251-2 (Version None)
Quarter: 2011Q1

REPORT INFORMATION
  Report Type: 
  Country: None (occurrence: None)
  Receive Date: 20110317
  Receipt Date: 20110311
  Transmission Date: 20110831
  Serious: Yes (Hospitalization, Other)
  Sender: FDA-Public Use
  Company Number: US-PFIZER INC-2006031725

PATIENT
  Sex: Female
  Weight: 81 kg

DRUGS (11)
  1. PRILOSEC [Concomitant]
     Route: 065
  2. NEURONTIN [Suspect]
     Indication: HEADACHE
     Route: 048
  3. NEURONTIN [Suspect]
     Indication: PAIN
     Dosage: 600 MG, UNK
     Dates: start: 20011113
  4. PHENERGAN [Concomitant]
     Route: 065
  5. AMITRIPTYLINE HCL [Concomitant]
     Route: 065
  6. NEURONTIN [Suspect]
     Dosage: UNK
     Dates: start: 20040505
  7. NEURONTIN [Suspect]
     Dosage: 400 MG, UNK
     Dates: start: 20030321
  8. LORCET-HD [Concomitant]
     Route: 065
  9. NORTRIPTYLINE [Concomitant]
     Route: 065
  10. NEURONTIN [Suspect]
     Indication: AFFECTIVE DISORDER
     Dosage: 300 MG, UNK
     Dates: start: 20020715
  11. INDERAL [Concomitant]
     Route: 065

REACTIONS (7)
  - SUICIDAL IDEATION [None]
  - SUICIDE ATTEMPT [None]
  - HALLUCINATION [None]
  - BIPOLAR I DISORDER [None]
  - OVERDOSE [None]
  - MAJOR DEPRESSION [None]
  - SUBSTANCE ABUSE [None]
